FAERS Safety Report 13565612 (Version 1)
Quarter: 2017Q2

REPORT INFORMATION
  Report Type: Spontaneous
  Country: US (occurrence: US)
  Receive Date: 20170519
  Receipt Date: 20170519
  Transmission Date: 20170830
  Serious: No
  Sender: FDA-Public Use
  Company Number: US-BION-20160269

PATIENT
  Age: 55 Year
  Sex: Male
  Weight: 108.86 kg

DRUGS (1)
  1. MOTRIN IB [Suspect]
     Active Substance: IBUPROFEN
     Indication: ANALGESIC THERAPY
     Dosage: 4 DSF BID
     Route: 048

REACTIONS (2)
  - Drug ineffective [Unknown]
  - Intentional overdose [Unknown]
